FAERS Safety Report 11608096 (Version 1)
Quarter: 2015Q4

REPORT INFORMATION
  Report Type: Spontaneous
  Country: IT (occurrence: IT)
  Receive Date: 20151007
  Receipt Date: 20151007
  Transmission Date: 20160304
  Serious: Yes (Other)
  Sender: FDA-Public Use
  Company Number: IT-JNJFOC-20150926632

PATIENT
  Age: 32 Year
  Sex: Male

DRUGS (1)
  1. RISPERDAL [Suspect]
     Active Substance: RISPERIDONE
     Indication: SELF INJURIOUS BEHAVIOUR
     Route: 048
     Dates: start: 20150928, end: 20150928

REACTIONS (1)
  - Self injurious behaviour [Unknown]

NARRATIVE: CASE EVENT DATE: 20150928
